FAERS Safety Report 9380766 (Version 4)
Quarter: 2013Q3

REPORT INFORMATION
  Report Type: Spontaneous
  Country: JP (occurrence: JP)
  Receive Date: 20130702
  Receipt Date: 20130822
  Transmission Date: 20140515
  Serious: Yes (Life-Threatening, Hospitalization, Disabling, Other)
  Sender: FDA-Public Use
  Company Number: JP-B.I. PHARMACEUTICALS,INC./RIDGEFIELD-2013-BI-18972GD

PATIENT
  Age: 70 Year
  Sex: Male
  Weight: 73 kg

DRUGS (5)
  1. PRADAXA [Suspect]
     Indication: ATRIAL FIBRILLATION
     Dosage: 220 MG
     Route: 048
     Dates: start: 201208
  2. PRADAXA [Suspect]
     Dosage: 220 MG
     Route: 048
     Dates: end: 20130227
  3. BAYASPIRIN [Concomitant]
     Dosage: 100 MG
     Route: 048
     Dates: start: 20120930
  4. ANPLAG [Concomitant]
     Dosage: 300 MG
     Route: 048
     Dates: start: 20121009, end: 20130302
  5. PLETAAL [Concomitant]
     Dosage: 200 MG
     Route: 048
     Dates: start: 20130303

REACTIONS (8)
  - Embolic stroke [Recovered/Resolved with Sequelae]
  - Atrial thrombosis [Recovered/Resolved]
  - Peripheral embolism [Recovered/Resolved with Sequelae]
  - Arterial occlusive disease [Recovered/Resolved]
  - Visual impairment [Unknown]
  - Arterial occlusive disease [Recovered/Resolved]
  - Hemianopia homonymous [Recovered/Resolved with Sequelae]
  - Drug ineffective [Unknown]
